FAERS Safety Report 19890477 (Version 1)
Quarter: 2021Q3

REPORT INFORMATION
  Report Type: Spontaneous
  Country: BR (occurrence: BR)
  Receive Date: 20210927
  Receipt Date: 20210927
  Transmission Date: 20211014
  Serious: Yes (Hospitalization, Other)
  Sender: FDA-Public Use
  Company Number: BR-TAKEDA-2021TUS059658

PATIENT
  Age: 25 Year
  Sex: Female

DRUGS (4)
  1. MESALAZINE [Suspect]
     Active Substance: MESALAMINE
     Indication: PRODUCT USED FOR UNKNOWN INDICATION
     Dosage: 3.2 GRAM, QD
     Route: 065
  2. PREDNISONE. [Concomitant]
     Active Substance: PREDNISONE
     Dosage: UNK
     Dates: start: 201707, end: 201805
  3. ISONIAZIDE [Concomitant]
     Active Substance: ISONIAZID
     Dosage: UNK
  4. ENTYVIO [Suspect]
     Active Substance: VEDOLIZUMAB
     Indication: PRODUCT USED FOR UNKNOWN INDICATION
     Dosage: 300 MILLIGRAM
     Route: 042
     Dates: start: 201807

REACTIONS (14)
  - Abdominal pain [Unknown]
  - Pyrexia [Unknown]
  - Duodenitis [Unknown]
  - Mucous stools [Unknown]
  - Colitis [Unknown]
  - Gastritis [Unknown]
  - Haematochezia [Unknown]
  - Weight decreased [Unknown]
  - Condition aggravated [Unknown]
  - Enteritis [Unknown]
  - Adverse event [Unknown]
  - Abdominal distension [Unknown]
  - Diarrhoea [Unknown]
  - Pregnancy [Recovered/Resolved]

NARRATIVE: CASE EVENT DATE: 202005
